FAERS Safety Report 23432152 (Version 5)
Quarter: 2024Q3

REPORT INFORMATION
  Report Type: Spontaneous
  Country: JP (occurrence: None)
  Receive Date: 20240123
  Receipt Date: 20240809
  Transmission Date: 20241016
  Serious: Yes (Life-Threatening, Hospitalization)
  Sender: ASTRAZENECA
  Company Number: 2024A015087

PATIENT
  Age: 59 Year
  Sex: Female

DRUGS (15)
  1. CALQUENCE [Suspect]
     Active Substance: ACALABRUTINIB
     Indication: Chronic lymphocytic leukaemia
     Route: 048
     Dates: start: 20231109, end: 20231113
  2. CALQUENCE [Suspect]
     Active Substance: ACALABRUTINIB
     Indication: Chronic lymphocytic leukaemia
     Route: 048
     Dates: start: 20231212, end: 20240111
  3. GAZYVA [Suspect]
     Active Substance: OBINUTUZUMAB
     Indication: Chronic lymphocytic leukaemia
     Route: 042
     Dates: start: 20240111, end: 20240111
  4. OBINUTUZUMAB [Concomitant]
     Active Substance: OBINUTUZUMAB
     Indication: Chronic lymphocytic leukaemia
     Dosage: DOSE UNKNOWN
     Dates: start: 20240111, end: 20240112
  5. LUNESTA [Concomitant]
     Active Substance: ESZOPICLONE
     Indication: Insomnia
     Route: 048
     Dates: start: 20230111
  6. LIVALO [Concomitant]
     Active Substance: PITAVASTATIN CALCIUM
     Indication: Dyslipidaemia
     Route: 048
     Dates: end: 20240112
  7. SULFAMETHOXAZOLE\TRIMETHOPRIM [Concomitant]
     Active Substance: SULFAMETHOXAZOLE\TRIMETHOPRIM
     Indication: Infection prophylaxis
     Route: 048
     Dates: start: 20231112
  8. ACYCLOVIR [Concomitant]
     Active Substance: ACYCLOVIR
     Indication: Herpes zoster
     Dates: start: 20231112
  9. MAGNESIUM OXIDE [Concomitant]
     Active Substance: MAGNESIUM OXIDE
     Indication: Constipation
     Route: 048
     Dates: start: 20231129
  10. REBAMIPIDE [Concomitant]
     Active Substance: REBAMIPIDE
     Indication: Adverse drug reaction
     Dosage: AS REQUIRED100.0MG ONCE/SINGLE ADMINISTRATION
     Route: 048
     Dates: start: 20231215, end: 20240112
  11. DEXAMETHASONE SODIUM PHOSPHATE [Concomitant]
     Active Substance: DEXAMETHASONE PHOSPHATE\DEXAMETHASONE SODIUM PHOSPHATE
     Indication: Drug hypersensitivity
     Route: 042
     Dates: start: 20240111, end: 20240111
  12. ACETAMINOPHEN [Concomitant]
     Active Substance: ACETAMINOPHEN
     Indication: Drug hypersensitivity
     Route: 048
     Dates: start: 20240111, end: 20240111
  13. DIPHENHYDRAMINE [Concomitant]
     Active Substance: DIPHENHYDRAMINE
     Indication: Drug hypersensitivity
     Route: 048
     Dates: start: 20240111, end: 20240111
  14. FEBUXOSTAT OD [Concomitant]
     Indication: Hyperuricaemia
     Route: 048
     Dates: start: 20240111, end: 20240112
  15. FEBUXOSTAT OD [Concomitant]
     Indication: Hyperuricaemia
     Route: 048
     Dates: start: 20240113

REACTIONS (4)
  - Acute coronary syndrome [Recovered/Resolved with Sequelae]
  - Headache [Recovered/Resolved]
  - White blood cell count increased [Recovered/Resolved]
  - Blood pressure decreased [Recovered/Resolved]

NARRATIVE: CASE EVENT DATE: 20231111
